FAERS Safety Report 6083950-2 (Version None)
Quarter: 2009Q1

REPORT INFORMATION
  Report Type: 
  Country: None (occurrence: None)
  Receive Date: 20090219
  Receipt Date: 20090213
  Transmission Date: 20090719
  Serious: Yes (Hospitalization)
  Sender: FDA-Public Use
  Company Number: JP-AVENTIS-200910423JP

PATIENT
  Sex: Female

DRUGS (4)
  1. ALLEGRA [Suspect]
     Indication: URTICARIA
     Route: 048
     Dates: start: 20081101
  2. SHOSEIRYUTO [Concomitant]
  3. CLARITHROMYCIN [Concomitant]
  4. COUGH AND COLD PREPARATIONS [Concomitant]

REACTIONS (1)
  - PNEUMONIA [None]
